FAERS Safety Report 6399484-1 (Version None)
Quarter: 2009Q4

REPORT INFORMATION
  Report Type: 
  Country: None (occurrence: None)
  Receive Date: 20091014
  Receipt Date: 20091006
  Transmission Date: 20100525
  Serious: No
  Sender: FDA-Public Use
  Company Number: US-JNJFOC-20091002700

PATIENT
  Sex: Male
  Weight: 108.86 kg

DRUGS (4)
  1. DURAGESIC-100 [Suspect]
     Indication: PAIN
     Route: 062
     Dates: start: 19990101, end: 20060101
  2. NEURONTIN [Concomitant]
     Indication: PAIN
     Route: 048
  3. ZESTRIL [Concomitant]
     Indication: BLOOD PRESSURE
     Route: 048
  4. CATAPRES [Concomitant]
     Indication: BLOOD PRESSURE
     Route: 062

REACTIONS (1)
  - WRONG TECHNIQUE IN DRUG USAGE PROCESS [None]
